FAERS Safety Report 18233479 (Version 5)
Quarter: 2021Q2

REPORT INFORMATION
  Report Type: Spontaneous
  Country: IN (occurrence: IN)
  Receive Date: 20200904
  Receipt Date: 20210604
  Transmission Date: 20210717
  Serious: Yes (Other)
  Sender: FDA-Public Use
  Company Number: IN-PFIZER INC-2019523392

PATIENT
  Age: 63 Year
  Sex: Female

DRUGS (4)
  1. CRIZALK [Suspect]
     Active Substance: CRIZOTINIB
     Indication: ALK GENE REARRANGEMENT POSITIVE
     Dosage: 250 MG, 1X/DAY
     Route: 048
     Dates: start: 20191029
  2. PALBACE [Suspect]
     Active Substance: PALBOCICLIB
     Indication: BREAST CANCER METASTATIC
     Dosage: 125 MG, 1X/DAY
     Route: 048
     Dates: start: 20191127
  3. CRIZALK [Suspect]
     Active Substance: CRIZOTINIB
     Indication: NON-SMALL CELL LUNG CANCER
     Dosage: 250 MG, 2X/DAY
     Route: 048
     Dates: start: 20191126
  4. CRIZALK [Suspect]
     Active Substance: CRIZOTINIB
     Dosage: 250 MG, BD/OD ALTERNATE DAY

REACTIONS (29)
  - Blood albumin decreased [Unknown]
  - Albumin globulin ratio decreased [Unknown]
  - High density lipoprotein decreased [Unknown]
  - Hepatic calcification [Unknown]
  - Platelet count decreased [Unknown]
  - Blood thyroid stimulating hormone increased [Unknown]
  - Pleural thickening [Unknown]
  - Hepatic lesion [Unknown]
  - Alanine aminotransferase increased [Unknown]
  - Blood creatinine increased [Unknown]
  - Monocyte count decreased [Unknown]
  - Blood alkaline phosphatase increased [Unknown]
  - Off label use [Unknown]
  - Hypothyroidism [Unknown]
  - Blood urea increased [Unknown]
  - Blood chloride increased [Unknown]
  - Neoplasm progression [Unknown]
  - Interstitial lung disease [Unknown]
  - Blood calcium decreased [Unknown]
  - Haemoglobin decreased [Unknown]
  - Red cell distribution width increased [Unknown]
  - Nodule [Unknown]
  - Maculopathy [Unknown]
  - Blood phosphorus increased [Unknown]
  - Mean cell haemoglobin concentration decreased [Unknown]
  - Lung opacity [Unknown]
  - Mean platelet volume increased [Unknown]
  - Thyroxine decreased [Unknown]
  - Atelectasis [Unknown]

NARRATIVE: CASE EVENT DATE: 20200822
